FAERS Safety Report 5181095-7 (Version None)
Quarter: 2006Q4

REPORT INFORMATION
  Report Type: 
  Country: None (occurrence: None)
  Receive Date: 20061220
  Receipt Date: 20061211
  Transmission Date: 20070319
  Serious: Yes (Hospitalization, Other)
  Sender: FDA-Public Use
  Company Number: JP-BAYER-200616265GDS

PATIENT
  Sex: Male

DRUGS (1)
  1. CIPROFLOXACIN [Suspect]
     Indication: DIARRHOEA
     Dosage: UNIT DOSE: 200 MG
     Route: 065

REACTIONS (2)
  - AMOEBIC DYSENTERY [None]
  - PSEUDOMEMBRANOUS COLITIS [None]
